FAERS Safety Report 4390925-8 (Version None)
Quarter: 2004Q2

REPORT INFORMATION
  Report Type: 
  Country: None (occurrence: None)
  Receive Date: 20040630
  Receipt Date: 20040618
  Transmission Date: 20050107
  Serious: Yes (Other)
  Sender: FDA-Public Use
  Company Number: ZONI001399

PATIENT
  Age: 87 Year
  Sex: Male
  Weight: 63.5036 kg

DRUGS (6)
  1. ZONEGRAN [Suspect]
     Indication: CONVULSION
     Dosage: 100 MG DAILY ORAL
     Route: 048
     Dates: start: 20031211, end: 20040615
  2. FLOMAX [Concomitant]
  3. KEPPRA [Concomitant]
  4. COREG [Concomitant]
  5. LORAZEPAM [Concomitant]
  6. ,, [Concomitant]

REACTIONS (7)
  - ABNORMAL BEHAVIOUR [None]
  - CIRCULATORY COLLAPSE [None]
  - CONFUSIONAL STATE [None]
  - FALL [None]
  - GAIT DISTURBANCE [None]
  - MEMORY IMPAIRMENT [None]
  - PARKINSON'S DISEASE [None]
